FAERS Safety Report 4698366-0 (Version None)
Quarter: 2005Q2

REPORT INFORMATION
  Report Type: 
  Country: None (occurrence: None)
  Receive Date: 20050623
  Receipt Date: 20050531
  Transmission Date: 20051028
  Serious: Yes (Hospitalization)
  Sender: FDA-Public Use
  Company Number: DE-ROCHE-406204

PATIENT
  Age: 64 Year
  Sex: Female

DRUGS (2)
  1. RIBAVIRIN [Suspect]
     Route: 048
     Dates: start: 20050218
  2. PEG-INTERFERON ALPHA 2B [Suspect]
     Route: 058
     Dates: start: 20050218

REACTIONS (3)
  - HAEMOLYSIS [None]
  - HEPATIC FAILURE [None]
  - SPLENOMEGALY [None]
